FAERS Safety Report 8268792-1 (Version None)
Quarter: 2012Q2

REPORT INFORMATION
  Report Type: 
  Country: None (occurrence: None)
  Receive Date: 20120409
  Receipt Date: 20120409
  Transmission Date: 20120825
  Serious: Yes (Other)
  Sender: FDA-Public Use
  Company Number: None

PATIENT
  Sex: Female
  Weight: 94.4 kg

DRUGS (2)
  1. PRIMAXIN [Suspect]
     Indication: URINARY TRACT INFECTION
     Dosage: 500MG
     Route: 041
     Dates: start: 20120131, end: 20120203
  2. PRIMAXIN [Suspect]
     Indication: KLEBSIELLA INFECTION
     Dosage: 500MG
     Route: 041
     Dates: start: 20120131, end: 20120203

REACTIONS (1)
  - THROAT TIGHTNESS [None]
